FAERS Safety Report 4824344-4 (Version None)
Quarter: 2005Q4

REPORT INFORMATION
  Report Type: 
  Country: None (occurrence: None)
  Receive Date: 20051109
  Receipt Date: 20050803
  Transmission Date: 20060501
  Serious: Yes (Hospitalization, Other)
  Sender: FDA-Public Use
  Company Number: US-MERCK-0508USA01245

PATIENT
  Age: 63 Year
  Sex: Male
  Weight: 86 kg

DRUGS (14)
  1. VIOXX [Suspect]
     Indication: ARTHRITIS
     Route: 048
     Dates: start: 20000711, end: 20040501
  2. DIOVAN [Concomitant]
     Indication: HYPERTENSION
     Route: 065
     Dates: start: 20000405
  3. TOPROL-XL [Concomitant]
     Indication: HYPERTENSION
     Route: 065
     Dates: start: 20010101, end: 20030417
  4. ZOCOR [Concomitant]
     Route: 065
     Dates: start: 20000901
  5. LASIX [Concomitant]
     Indication: HYPERTENSION
     Route: 065
     Dates: start: 20000101
  6. HYDRODIURIL [Concomitant]
     Route: 065
     Dates: start: 20001101, end: 20030401
  7. NEXIUM [Concomitant]
     Route: 065
  8. QUININE [Concomitant]
     Route: 065
  9. [THERAPY UNSPECIFIED] [Concomitant]
     Route: 065
  10. COLACE [Concomitant]
     Route: 065
  11. FLEXERIL [Concomitant]
     Route: 065
  12. VASOTEC [Concomitant]
     Route: 065
     Dates: start: 20020101, end: 20030101
  13. DARVOCET-N 100 [Concomitant]
     Route: 065
  14. PRILOSEC [Concomitant]
     Route: 065

REACTIONS (7)
  - ARTERIOSCLEROSIS [None]
  - BLOOD CHOLESTEROL INCREASED [None]
  - GASTROOESOPHAGEAL REFLUX DISEASE [None]
  - HYPERCHOLESTEROLAEMIA [None]
  - HYPERTENSION [None]
  - MYOCARDIAL INFARCTION [None]
  - NEPHROLITHIASIS [None]
